FAERS Safety Report 6825964-8 (Version None)
Quarter: 2010Q3

REPORT INFORMATION
  Report Type: 
  Country: None (occurrence: None)
  Receive Date: 20100709
  Receipt Date: 20100402
  Transmission Date: 20110219
  Serious: No
  Sender: FDA-Public Use
  Company Number: A0780574A

PATIENT
  Age: 60 Year
  Sex: Female

DRUGS (8)
  1. REQUIP XL [Suspect]
     Indication: PARKINSON'S DISEASE
     Dosage: 8MG AT NIGHT
     Route: 048
     Dates: start: 20090101
  2. SINEMET [Suspect]
     Indication: PRODUCT USED FOR UNKNOWN INDICATION
     Route: 065
  3. AZILECT [Concomitant]
  4. MULTIVITAMIN + GINSENG [Concomitant]
  5. POTASSIUM CHLORIDE [Concomitant]
  6. LEVODOPA [Concomitant]
  7. UNSPECIFIED MEDICATION [Concomitant]
  8. SINEMET [Concomitant]

REACTIONS (12)
  - ANXIETY [None]
  - ARRHYTHMIA [None]
  - ASTHENIA [None]
  - BLOOD PRESSURE INCREASED [None]
  - DYSKINESIA [None]
  - INFLUENZA [None]
  - INSOMNIA [None]
  - MOVEMENT DISORDER [None]
  - MUSCLE SPASMS [None]
  - PALPITATIONS [None]
  - TREMOR [None]
  - VENTRICULAR EXTRASYSTOLES [None]
